FAERS Safety Report 4427719-0 (Version None)
Quarter: 2004Q3

REPORT INFORMATION
  Report Type: 
  Country: None (occurrence: None)
  Receive Date: 20040812
  Receipt Date: 20040802
  Transmission Date: 20050211
  Serious: Yes (Death)
  Sender: FDA-Public Use
  Company Number: 2004226145AT

PATIENT
  Age: 41 Year
  Sex: Female
  Weight: 52 kg

DRUGS (5)
  1. XANOR        (ALPRAZOLAM) [Suspect]
     Indication: DEPRESSION
  2. PARKEMED (MEFENAMINC AICD) TABLET, 500 MG [Suspect]
  3. SERTRALINE HYDROCHLORIDE [Suspect]
     Indication: DEPRESSION
  4. TRAZOLAN TABLET (TRAZODONE HYDROCHLORIDE)TABLET [Suspect]
     Indication: DEPRESSION
     Dosage: ORAL
     Route: 048
  5. ALCOHOL (ETHANOL, ETHANOL, ETHANOL) SOLUTION, 70% [Suspect]
     Dosage: ORAL
     Route: 048

REACTIONS (4)
  - ALCOHOL USE [None]
  - COMPLETED SUICIDE [None]
  - INTENTIONAL OVERDOSE [None]
  - MULTIPLE DRUG OVERDOSE [None]
